FAERS Safety Report 4511042-X (Version None)
Quarter: 2004Q4

REPORT INFORMATION
  Report Type: 
  Country: None (occurrence: None)
  Receive Date: 20041018
  Receipt Date: 20040924
  Transmission Date: 20050328
  Serious: No
  Sender: FDA-Public Use
  Company Number: 209269

PATIENT
  Age: 54 Year
  Sex: Male
  Weight: 122 kg

DRUGS (12)
  1. XOLAIR [Suspect]
     Indication: ASTHMA
     Dosage: 300 MG, Q2W, SUBCUTANEOUS
     Route: 058
     Dates: start: 20040727, end: 20040727
  2. ALTACE [Concomitant]
  3. MAXZIDE [Concomitant]
  4. CLONIDINE [Concomitant]
  5. NEXIUM [Concomitant]
  6. ZYRTEC [Concomitant]
  7. COMBIVENT (IPRATROPIUM BROMIDE, ALBUTEROL SULFATE, ALBUTEROL) [Concomitant]
  8. FLOVENT [Concomitant]
  9. DUONEB (IPRATROPIUM BROMIDE, ALBUTEROL SULFATE, ALBUTEROL) [Concomitant]
  10. SINGULAIR [Concomitant]
  11. PULMICORT INHALER (BUDESONIDE) [Concomitant]
  12. BEXTRA [Concomitant]

REACTIONS (1)
  - HYPERTROPHY BREAST [None]
